FAERS Safety Report 24136717 (Version 1)
Quarter: 2024Q3

REPORT INFORMATION
  Report Type: Spontaneous
  Country: US (occurrence: US)
  Receive Date: 20240725
  Receipt Date: 20240725
  Transmission Date: 20241017
  Serious: Yes (Life-Threatening, Hospitalization, Other)
  Sender: LUPIN
  Company Number: IN-Wipro-3957264-379250

PATIENT
  Age: 66 Year
  Sex: Female

DRUGS (2)
  1. OXYCODONE [Suspect]
     Active Substance: OXYCODONE
     Indication: Pain
     Dosage: 10 MILLIGRAM, IMMEDIATE-RELEASE
     Route: 065
  2. MORPHINE [Suspect]
     Active Substance: MORPHINE
     Indication: Pain
     Dosage: 15 MILLIGRAM, EXTENDED-RELEASE
     Route: 065

REACTIONS (3)
  - Acute respiratory failure [Recovering/Resolving]
  - Drug withdrawal syndrome [Unknown]
  - Overdose [Unknown]
